FAERS Safety Report 7733616-5 (Version None)
Quarter: 2011Q3

REPORT INFORMATION
  Report Type: 
  Country: None (occurrence: None)
  Receive Date: 20110907
  Receipt Date: 20110905
  Transmission Date: 20111222
  Serious: Yes (Hospitalization)
  Sender: FDA-Public Use
  Company Number: FR-BRISTOL-MYERS SQUIBB COMPANY-15898414

PATIENT
  Age: 72 Year
  Sex: Male

DRUGS (11)
  1. COUMADIN [Suspect]
     Indication: PULMONARY EMBOLISM
     Route: 048
     Dates: start: 20110530, end: 20110614
  2. ATARAX [Concomitant]
  3. ACETAMINOPHEN [Concomitant]
  4. METFORMIN HCL [Concomitant]
     Dosage: MYLAN 1000MG
  5. INDAPAMIDE [Concomitant]
  6. BEFIZAL [Concomitant]
     Dosage: BEFIZAL SR 400 MG PROLONGED RELEASE COATED TABLET
  7. CETIRIZINE HCL [Concomitant]
  8. METFORMIN HCL [Concomitant]
  9. BISOPROLOL FUMARATE [Concomitant]
     Dosage: BISOCE
  10. IRBESARTAN [Concomitant]
  11. MYOLASTAN [Concomitant]

REACTIONS (3)
  - RENAL FAILURE [None]
  - HAEMOGLOBIN DECREASED [None]
  - HAEMATOMA [None]
